FAERS Safety Report 8918221 (Version 1)
Quarter: 2012Q4

REPORT INFORMATION
  Report Type: 
  Country: US (occurrence: US)
  Receive Date: 20121120
  Receipt Date: 20121120
  Transmission Date: 20130627
  Serious: No
  Sender: FDA-Public Use
  Company Number: US-ASTRAZENECA-2012SE24714

PATIENT
  Sex: Female
  Weight: 65.8 kg

DRUGS (6)
  1. NEXIUM [Suspect]
     Indication: GASTROOESOPHAGEAL REFLUX DISEASE
     Route: 048
     Dates: start: 20120404
  2. GABAPENTIN [Concomitant]
     Indication: FIBROMYALGIA
  3. AMITRIPTYLINE [Concomitant]
     Indication: FIBROMYALGIA
  4. SEROQUEL [Concomitant]
     Indication: FIBROMYALGIA
  5. SAVELLA [Concomitant]
     Indication: FIBROMYALGIA
  6. LISINOPRIL [Concomitant]
     Indication: BLOOD PRESSURE

REACTIONS (2)
  - Drug ineffective [Unknown]
  - Gastrooesophageal reflux disease [Unknown]
